FAERS Safety Report 6873311-8 (Version None)
Quarter: 2010Q3

REPORT INFORMATION
  Report Type: 
  Country: None (occurrence: None)
  Receive Date: 20100723
  Receipt Date: 20090104
  Transmission Date: 20110219
  Serious: Yes (Other)
  Sender: FDA-Public Use
  Company Number: US-PFIZER INC-2009151411

PATIENT
  Sex: Male
  Weight: 117.91 kg

DRUGS (3)
  1. CHANTIX [Suspect]
     Indication: SMOKING CESSATION THERAPY
     Dosage: 0.5 MG, 1X/DAY
     Dates: start: 20080901, end: 20080901
  2. TYLENOL [Concomitant]
     Indication: HEADACHE
     Dosage: UNK
  3. IBUPROFEN [Concomitant]
     Indication: HEADACHE
     Dosage: UNK

REACTIONS (3)
  - AGGRESSION [None]
  - ANGER [None]
  - SUICIDAL IDEATION [None]
